FAERS Safety Report 7361784-6 (Version None)
Quarter: 2011Q1

REPORT INFORMATION
  Report Type: 
  Country: None (occurrence: None)
  Receive Date: 20110318
  Receipt Date: 20110314
  Transmission Date: 20110831
  Serious: Yes (Hospitalization, Disabling)
  Sender: FDA-Public Use
  Company Number: DE-MERCK-1102DEU00082

PATIENT
  Age: 69 Year
  Sex: Male
  Weight: 138 kg

DRUGS (11)
  1. ASPIRIN [Concomitant]
     Route: 048
  2. ALLOPURINOL [Concomitant]
     Route: 048
  3. INSULIN ASPART [Concomitant]
     Route: 058
  4. CALCIPOTRIENE [Concomitant]
     Indication: PSORIASIS
     Route: 061
  5. CANDESARTAN CILEXETIL [Concomitant]
     Route: 048
  6. TORSEMIDE [Concomitant]
     Route: 048
  7. PREGABALIN [Concomitant]
     Route: 048
  8. LOVASTATIN [Concomitant]
     Route: 048
  9. JANUVIA [Suspect]
     Indication: TYPE 1 DIABETES MELLITUS
     Route: 048
     Dates: start: 20100629, end: 20110209
  10. SPIRONOLACTONE [Concomitant]
     Route: 048
  11. LEVOTHYROXINE SODIUM [Concomitant]
     Route: 048

REACTIONS (8)
  - SUBCUTANEOUS NODULE [None]
  - LIVER FUNCTION TEST ABNORMAL [None]
  - RENAL FUNCTION TEST ABNORMAL [None]
  - NAIL INJURY [None]
  - HIDRADENITIS [None]
  - INTERTRIGO [None]
  - SINUS POLYP [None]
  - PSORIASIS [None]
